FAERS Safety Report 8511679 (Version 2)
Quarter: 2014Q3

REPORT INFORMATION
  Report Type: Spontaneous
  Country: US (occurrence: US)
  Receive Date: 20120413
  Receipt Date: 20140723
  Transmission Date: 20150326
  Serious: No
  Sender: FDA-Public Use
  Company Number: US-ASTRAZENECA-2012SE12939

PATIENT
  Age: 72 Year
  Sex: Male
  Weight: 104.3 kg

DRUGS (9)
  1. VITAMIN E [Concomitant]
     Active Substance: .ALPHA.-TOCOPHEROL
  2. TOCOPHERAL E [Concomitant]
  3. ALL OTHER PROTON INHIBITORS [Concomitant]
  4. NEXIUM [Suspect]
     Active Substance: ESOMEPRAZOLE MAGNESIUM
     Indication: GASTROOESOPHAGEAL REFLUX DISEASE
     Route: 048
  5. SUNLINGUAL VIT B12 [Concomitant]
  6. THIAMINE [Concomitant]
     Active Substance: THIAMINE
  7. MANY ALTERNATIVE, OTC MEDICATIONS [Concomitant]
  8. PROSTATE [Concomitant]
     Active Substance: PROSTATE
  9. PRILOSEC [Suspect]
     Active Substance: OMEPRAZOLE MAGNESIUM
     Route: 048

REACTIONS (7)
  - Dyspepsia [Unknown]
  - Drug dose omission [Unknown]
  - Adverse event [Unknown]
  - Neuropathy peripheral [Not Recovered/Not Resolved]
  - Gastrooesophageal reflux disease [Unknown]
  - Intentional product misuse [Recovered/Resolved]
  - Drug ineffective [Unknown]
